FAERS Safety Report 17136342 (Version 1)
Quarter: 2019Q4

REPORT INFORMATION
  Report Type: Report from Study
  Country: CA (occurrence: CA)
  Receive Date: 20191210
  Receipt Date: 20191210
  Transmission Date: 20200122
  Serious: Yes (Other)
  Sender: FDA-Public Use
  Company Number: CA-JNJFOC-20191203021

PATIENT
  Age: 42 Year
  Sex: Female
  Weight: 79 kg

DRUGS (1)
  1. REMICADE [Suspect]
     Active Substance: INFLIXIMAB
     Indication: COLITIS ULCERATIVE
     Route: 042

REACTIONS (6)
  - Eye irritation [Recovering/Resolving]
  - Uterine cyst [Unknown]
  - Off label use [Unknown]
  - Product use issue [Unknown]
  - Hepatic neoplasm [Unknown]
  - Blood urine present [Unknown]

NARRATIVE: CASE EVENT DATE: 20191101
